FAERS Safety Report 9544120 (Version 3)
Quarter: 2014Q1

REPORT INFORMATION
  Report Type: Spontaneous
  Country: DK (occurrence: DK)
  Receive Date: 20130923
  Receipt Date: 20140101
  Transmission Date: 20141002
  Serious: Yes (Hospitalization, Disabling)
  Sender: FDA-Public Use
  Company Number: DK-GE HEALTHCARE MEDICAL DIAGNOSTICS-VISP-NO-1007S-0381

PATIENT
  Age: 59 Year
  Sex: Female

DRUGS (7)
  1. VISIPAQUE [Suspect]
     Indication: LUNG NEOPLASM MALIGNANT
     Dosage: DOSE NOT REPORTED
     Route: 013
     Dates: start: 20090904, end: 20090904
  2. VISIPAQUE [Suspect]
     Indication: DIAGNOSTIC PROCEDURE
  3. FELODIPINE [Concomitant]
  4. CORODIL [Concomitant]
  5. CENTYL MED  KALIUMKLORID [Concomitant]
  6. SEROQUEL [Concomitant]
  7. AKARIN [Concomitant]

REACTIONS (5)
  - Guillain-Barre syndrome [Not Recovered/Not Resolved]
  - Disability [Recovered/Resolved]
  - Pruritus [Unknown]
  - Rash [Recovered/Resolved]
  - Pain [Recovered/Resolved]
